FAERS Safety Report 9036853 (Version 1)
Quarter: 2013Q1

REPORT INFORMATION
  Report Type: Report from Study
  Country: US (occurrence: US)
  Receive Date: 20130129
  Receipt Date: 20130129
  Transmission Date: 20140127
  Serious: No
  Sender: FDA-Public Use
  Company Number: US-ABBOTT-12P-163-0895889-00

PATIENT
  Age: 46 None
  Sex: Male
  Weight: 98.97 kg

DRUGS (4)
  1. HUMIRA 40 MG/0.8 ML PEN [Suspect]
     Indication: PSORIASIS
     Dosage: ONCE
     Dates: start: 2009, end: 2009
  2. HUMIRA 40 MG/0.8 ML PEN [Suspect]
     Indication: PSORIATIC ARTHROPATHY
     Dates: start: 2009, end: 201102
  3. HUMIRA 40 MG/0.8 ML PEN [Suspect]
     Dosage: ONCE
     Dates: start: 20120109, end: 20120109
  4. TACLONEX [Concomitant]
     Indication: PSORIASIS

REACTIONS (5)
  - Psoriasis [Not Recovered/Not Resolved]
  - Arthritis [Recovering/Resolving]
  - Arthralgia [Recovering/Resolving]
  - Upper respiratory tract infection [Recovered/Resolved]
  - Upper respiratory tract infection [Not Recovered/Not Resolved]
